FAERS Safety Report 22654632 (Version 1)
Quarter: 2023Q2

REPORT INFORMATION
  Report Type: Spontaneous
  Country: US (occurrence: US)
  Receive Date: 20230629
  Receipt Date: 20230629
  Transmission Date: 20230722
  Serious: Yes (Other)
  Sender: FDA-Public Use
  Company Number: US-Blueprint Medicines Corporation-1229

PATIENT
  Sex: Female

DRUGS (1)
  1. AYVAKIT [Suspect]
     Active Substance: AVAPRITINIB
     Indication: Systemic mastocytosis
     Route: 065

REACTIONS (5)
  - Neuropathy peripheral [Unknown]
  - Irritable bowel syndrome [Unknown]
  - Asthma [Unknown]
  - Lung disorder [Unknown]
  - Hypersensitivity [Unknown]
